FAERS Safety Report 14557070 (Version 1)
Quarter: 2018Q1

REPORT INFORMATION
  Report Type: Spontaneous
  Country: US (occurrence: US)
  Receive Date: 20180221
  Receipt Date: 20180221
  Transmission Date: 20180509
  Serious: No
  Sender: FDA-Public Use
  Company Number: US-BAYER-2018-034314

PATIENT
  Sex: Female

DRUGS (17)
  1. LIDOCAIN [Concomitant]
     Active Substance: LIDOCAINE
     Dosage: 5 %, UNK
  2. BENADRYL [Concomitant]
     Active Substance: DIPHENHYDRAMINE HYDROCHLORIDE
     Dosage: 25 MG, UNK
  3. VENTOLIN [Concomitant]
     Active Substance: ALBUTEROL SULFATE
     Dosage: UNK
  4. BETASERON [Suspect]
     Active Substance: INTERFERON BETA-1B
     Dosage: 0.25 MG, QOD
     Route: 058
  5. KEFLEX-C [Concomitant]
     Active Substance: CEPHALEXIN
     Dosage: 750 MG, UNK
     Route: 048
  6. MAGNESIUM [MAGNESIUM] [Concomitant]
     Dosage: 250 MG, UNK
  7. BALANCED B-50 [Concomitant]
     Dosage: UNK
  8. DELSYM [Concomitant]
     Active Substance: DEXTROMETHORPHAN
     Dosage: UNK (30MG/5ML)
  9. HYOSCYAMINE SULFATE. [Concomitant]
     Active Substance: HYOSCYAMINE SULFATE
     Dosage: 120 MG, UNK
  10. ASPIRIN. [Concomitant]
     Active Substance: ASPIRIN
     Dosage: UNK
  11. ESTRACE [Concomitant]
     Active Substance: ESTRADIOL
     Dosage: 0.1 MG/G, UNK
  12. ESTROPIPATE. [Concomitant]
     Active Substance: ESTROPIPATE
     Dosage: 1.5 MG, UNK
  13. METHYLPREDNIS [Concomitant]
     Dosage: 50 MG, UNK
  14. BACTRIM DS [Concomitant]
     Active Substance: SULFAMETHOXAZOLE\TRIMETHOPRIM
     Dosage: 160 MG, UNK
  15. DOXYCYCLINE. [Concomitant]
     Active Substance: DOXYCYCLINE
     Dosage: UNK
  16. GEMFIBROZIL. [Concomitant]
     Active Substance: GEMFIBROZIL
     Dosage: 600 MG, UNK
  17. VALACICLOVIR [Concomitant]
     Active Substance: VALACYCLOVIR HYDROCHLORIDE
     Dosage: 500 MG, UNK

REACTIONS (1)
  - Depression [None]
